FAERS Safety Report 19194314 (Version 1)
Quarter: 2021Q2

REPORT INFORMATION
  Report Type: Spontaneous
  Country: FR (occurrence: FR)
  Receive Date: 20210429
  Receipt Date: 20210429
  Transmission Date: 20210717
  Serious: Yes (Hospitalization)
  Sender: FDA-Public Use
  Company Number: FR-TEVA-2021-FR-1905387

PATIENT
  Age: 78 Year
  Sex: Female
  Weight: 86 kg

DRUGS (9)
  1. SIMVASTATINE [Suspect]
     Active Substance: SIMVASTATIN
     Indication: DYSLIPIDAEMIA
     Dosage: YEARS, 10MG
     Route: 048
     Dates: end: 20210320
  2. LORAZEPAM. [Concomitant]
     Active Substance: LORAZEPAM
  3. NEBIVOLOL. [Concomitant]
     Active Substance: NEBIVOLOL
  4. HYDROCHLOROTHIAZIDE. [Concomitant]
     Active Substance: HYDROCHLOROTHIAZIDE
  5. MODERNA COVID?19 VACCINE [Suspect]
     Active Substance: CX-024414
     Indication: COVID-19 IMMUNISATION
     Dosage: D2, 1DF
     Route: 030
     Dates: start: 20210308, end: 20210308
  6. PAROXETINE. [Concomitant]
     Active Substance: PAROXETINE
  7. LEVOTHYROX [Concomitant]
     Active Substance: LEVOTHYROXINE
  8. LERCANIDIPINE [Concomitant]
     Active Substance: LERCANIDIPINE
  9. IRBESARTAN. [Concomitant]
     Active Substance: IRBESARTAN

REACTIONS (1)
  - Pancreatitis acute [Recovering/Resolving]

NARRATIVE: CASE EVENT DATE: 20210308
